FAERS Safety Report 6372593-9 (Version None)
Quarter: 2009Q3

REPORT INFORMATION
  Report Type: 
  Country: None (occurrence: None)
  Receive Date: 20090924
  Receipt Date: 20090105
  Transmission Date: 20100115
  Serious: No
  Sender: FDA-Public Use
  Company Number: US-ASTRAZENECA-2008UW19056

PATIENT
  Age: 51 Year
  Sex: Female
  Weight: 81.6 kg

DRUGS (4)
  1. SEROQUEL [Suspect]
     Indication: DEPRESSION
     Dosage: 100 TO 200 MG
     Route: 048
     Dates: start: 20030506, end: 20070416
  2. GEODON [Concomitant]
     Dates: start: 20070301, end: 20070401
  3. RISPERDAL [Concomitant]
     Dates: start: 20060801, end: 20070501
  4. ZYPREXA [Concomitant]
     Dates: start: 20030101, end: 20030501

REACTIONS (4)
  - BLOOD CHOLESTEROL INCREASED [None]
  - CHRONIC OBSTRUCTIVE PULMONARY DISEASE [None]
  - GALLBLADDER DISORDER [None]
  - TYPE 2 DIABETES MELLITUS [None]
